FAERS Safety Report 7620422-5 (Version None)
Quarter: 2011Q3

REPORT INFORMATION
  Report Type: 
  Country: None (occurrence: None)
  Receive Date: 20110719
  Receipt Date: 20110715
  Transmission Date: 20111222
  Serious: Yes (Death, Hospitalization, Other)
  Sender: FDA-Public Use
  Company Number: US-AMGEN-QUU409867

PATIENT
  Age: 62 Year
  Sex: Female
  Weight: 80.4 kg

DRUGS (4)
  1. NPLATE [Suspect]
     Dates: start: 20091101
  2. NPLATE [Suspect]
     Indication: IDIOPATHIC THROMBOCYTOPENIC PURPURA
     Dosage: UNK UNK, UNK
     Dates: start: 20091109, end: 20091119
  3. CORTICOSTEROID NOS [Concomitant]
     Dosage: UNK UNK, UNK
  4. DEXAMETHASONE [Concomitant]

REACTIONS (2)
  - EMBOLISM [None]
  - NEOPLASM MALIGNANT [None]
